FAERS Safety Report 5022544-4 (Version None)
Quarter: 2006Q2

REPORT INFORMATION
  Report Type: 
  Country: None (occurrence: None)
  Receive Date: 20060605
  Receipt Date: 20060516
  Transmission Date: 20061013
  Serious: Yes (Other)
  Sender: FDA-Public Use
  Company Number: FR200605003760

PATIENT
  Age: 69 Year
  Sex: Female

DRUGS (2)
  1. FORTEO [Suspect]
     Indication: OSTEOPOROSIS
     Dosage: 20 UG, DAILY (1/D), SUBCUTANEOUS
     Route: 058
     Dates: start: 20051001, end: 20060505
  2. FORTEO PEN (150MCG/ML) (FORTEO PEN 150MCG/ML (3ML) PEN, DISPOSABLE [Concomitant]

REACTIONS (9)
  - ANGIONEUROTIC OEDEMA [None]
  - CARDIOMEGALY [None]
  - DYSPNOEA [None]
  - GASTROENTERITIS [None]
  - INFLAMMATION [None]
  - OEDEMA PERIPHERAL [None]
  - PERICARDIAL EFFUSION [None]
  - PNEUMONITIS [None]
  - TACHYCARDIA [None]
